FAERS Safety Report 23869320 (Version 1)
Quarter: 2024Q2

REPORT INFORMATION
  Report Type: Spontaneous
  Country: US (occurrence: None)
  Receive Date: 20240517
  Receipt Date: 20240517
  Transmission Date: 20240716
  Serious: Yes (Hospitalization)
  Sender: FDA-Public Use
  Company Number: None

PATIENT
  Age: 63 Year
  Sex: Male
  Weight: 78.7 kg

DRUGS (4)
  1. FLUOROURACIL [Suspect]
     Active Substance: FLUOROURACIL
     Dates: end: 20240416
  2. CAMPTOSAR [Suspect]
     Active Substance: IRINOTECAN HYDROCHLORIDE
     Dates: end: 20240416
  3. LEUCOVORIN CALCIUM [Suspect]
     Active Substance: LEUCOVORIN CALCIUM
     Dates: end: 20240416
  4. ELOXATIN [Suspect]
     Active Substance: OXALIPLATIN
     Dates: end: 20240416

REACTIONS (5)
  - Dizziness [None]
  - Proctalgia [None]
  - Enterocolitis [None]
  - Dehydration [None]
  - Hypophagia [None]

NARRATIVE: CASE EVENT DATE: 20240428
